FAERS Safety Report 22140486 (Version 1)
Quarter: 2023Q1

REPORT INFORMATION
  Report Type: Spontaneous
  Country: US (occurrence: None)
  Receive Date: 20230324
  Receipt Date: 20230324
  Transmission Date: 20230417
  Serious: Yes (Disabling)
  Sender: FDA-Public Use
  Company Number: None

PATIENT
  Sex: Female

DRUGS (1)
  1. SERTRALINE [Suspect]
     Active Substance: SERTRALINE HYDROCHLORIDE
     Indication: Depression
     Dosage: OTHER QUANTITY : 1 CAPSULE(S);?FREQUENCY : DAILY;?
     Route: 048
     Dates: start: 20221011, end: 20221025

REACTIONS (9)
  - Headache [None]
  - Dry mouth [None]
  - Nasal dryness [None]
  - Respiratory disorder [None]
  - Dizziness [None]
  - Tic [None]
  - Dyskinesia [None]
  - Muscle spasms [None]
  - Oropharyngeal spasm [None]

NARRATIVE: CASE EVENT DATE: 20221025
